FAERS Safety Report 7417292-7 (Version None)
Quarter: 2011Q2

REPORT INFORMATION
  Report Type: 
  Country: None (occurrence: None)
  Receive Date: 20110415
  Receipt Date: 20110408
  Transmission Date: 20111010
  Serious: Yes (Hospitalization)
  Sender: FDA-Public Use
  Company Number: FR-BRISTOL-MYERS SQUIBB COMPANY-15664782

PATIENT
  Age: 77 Year
  Sex: Male

DRUGS (6)
  1. TADENAN [Concomitant]
  2. NEXIUM [Concomitant]
  3. AMIODARONE HCL [Concomitant]
  4. COVERSYL [Concomitant]
  5. COUMADIN [Suspect]
     Indication: ATRIAL FIBRILLATION
     Dosage: INTRP ON 19NOV10,RESTR ON 14JAN11
     Route: 048
     Dates: end: 20101119
  6. FUROSEMIDE [Concomitant]

REACTIONS (6)
  - FALL [None]
  - HAEMOTHORAX [None]
  - INTERNATIONAL NORMALISED RATIO INCREASED [None]
  - SPINAL FRACTURE [None]
  - TRAUMATIC LUNG INJURY [None]
  - HAEMOGLOBIN DECREASED [None]
